FAERS Safety Report 17324392 (Version 1)
Quarter: 2020Q1

REPORT INFORMATION
  Report Type: Spontaneous
  Country: US (occurrence: US)
  Receive Date: 20200109
  Receipt Date: 20200109
  Transmission Date: 20200409
  Serious: Yes (Hospitalization)
  Sender: FDA-Public Use
  Company Number: None

PATIENT
  Age: 65 Year
  Sex: Male

DRUGS (9)
  1. AMLODIPINE [Concomitant]
     Active Substance: AMLODIPINE BESYLATE
  2. MEOPROL [Concomitant]
  3. HYDROCODOAPAP [Concomitant]
  4. PREGBALIN [Concomitant]
  5. PREDNISONE. [Concomitant]
     Active Substance: PREDNISONE
  6. ESBRIET [Suspect]
     Active Substance: PIRFENIDONE
     Indication: IDIOPATHIC PULMONARY FIBROSIS
     Route: 048
     Dates: start: 20181214
  7. IRBESARTAN. [Concomitant]
     Active Substance: IRBESARTAN
  8. OZEMPIC [Concomitant]
     Active Substance: SEMAGLUTIDE
  9. TRAMADOL. [Concomitant]
     Active Substance: TRAMADOL

REACTIONS (2)
  - Myocardial infarction [None]
  - Nausea [None]

NARRATIVE: CASE EVENT DATE: 20200103
